FAERS Safety Report 22383455 (Version 1)
Quarter: 2023Q2

REPORT INFORMATION
  Report Type: Report from Study
  Country: CA (occurrence: CA)
  Receive Date: 20230530
  Receipt Date: 20230530
  Transmission Date: 20230722
  Serious: Yes (Death)
  Sender: FDA-Public Use
  Company Number: CA-BAYER-2023A072864

PATIENT
  Age: 78 Year
  Sex: Male

DRUGS (8)
  1. ADEMPAS [Suspect]
     Active Substance: RIOCIGUAT
     Indication: Pulmonary hypertension
     Dosage: 2.5 MG, TID
     Dates: start: 20160514
  2. FUROSEMIDE [Concomitant]
     Active Substance: FUROSEMIDE
  3. IRBESARTAN [Concomitant]
     Active Substance: IRBESARTAN
  4. CHROMIUM [Concomitant]
     Active Substance: CHROMIC CHLORIDE\CHROMIUM
  5. PROSTATE GLAND EXTRACT [Concomitant]
  6. WARFARIN [Concomitant]
     Active Substance: WARFARIN
  7. ADVAIR HFA [Concomitant]
     Active Substance: FLUTICASONE PROPIONATE\SALMETEROL XINAFOATE
  8. TRACLEER [Concomitant]
     Active Substance: BOSENTAN

REACTIONS (1)
  - Death [Fatal]
